FAERS Safety Report 5034652-2 (Version None)
Quarter: 2006Q2

REPORT INFORMATION
  Report Type: 
  Country: None (occurrence: None)
  Receive Date: 20060621
  Receipt Date: 20060607
  Transmission Date: 20061013
  Serious: Yes (Other)
  Sender: FDA-Public Use
  Company Number: 222582

PATIENT
  Age: 67 Year
  Sex: Male

DRUGS (4)
  1. EFALIZUMAB                 (EFALIZUMAB) [Suspect]
     Indication: PSORIASIS
     Dosage: 0.142 MG/KG, 1/WEEK, SUBCUTANEOUS
     Route: 058
     Dates: start: 20051201, end: 20060216
  2. NEBIVOLOL HCL [Concomitant]
  3. LEVOTHYROXINE SODIUM [Concomitant]
  4. DOXAZOSIN MESYLATE [Concomitant]

REACTIONS (2)
  - ALOPECIA [None]
  - MYCOSIS FUNGOIDES [None]
